FAERS Safety Report 25994104 (Version 1)
Quarter: 2025Q4

REPORT INFORMATION
  Report Type: Spontaneous
  Country: GB (occurrence: GB)
  Receive Date: 20251104
  Receipt Date: 20251104
  Transmission Date: 20260117
  Serious: Yes (Hospitalization, Other)
  Sender: Onesource Specialty Pharma
  Company Number: GB-STRIDES ARCOLAB LIMITED-2025OS001088

PATIENT
  Age: 28 Year
  Sex: Female

DRUGS (4)
  1. BUPIVACAINE [Suspect]
     Active Substance: BUPIVACAINE
     Indication: Anaesthesia
     Dosage: 10 MILLILITER
     Route: 065
  2. BUPIVACAINE [Suspect]
     Active Substance: BUPIVACAINE
     Indication: Epidural analgesia
     Dosage: EPIDURAL ANALGESIA WAS SITED AT THIRD AND FOURTH LUMBAR INTERSPACE
     Route: 065
  3. FENTANYL [Suspect]
     Active Substance: FENTANYL
     Indication: Epidural analgesia
     Dosage: 2 MCG/ML, EPIDURAL ANALGESIA WAS SITED AT THIRD AND FOURTH LUMBAR INTERSPACE
     Route: 065
  4. INTRALIPID [Suspect]
     Active Substance: EGG PHOSPHOLIPIDS\GLYCERIN\SOYBEAN OIL
     Indication: Local anaesthetic systemic toxicity
     Dosage: UNK
     Route: 042

REACTIONS (3)
  - Seizure [None]
  - Local anaesthetic systemic toxicity [None]
  - Maternal exposure during delivery [Unknown]
